FAERS Safety Report 8284718 (Version 2)
Quarter: 2018Q4

REPORT INFORMATION
  Report Type: Spontaneous
  Country: DE (occurrence: DE)
  Receive Date: 20111212
  Receipt Date: 20181004
  Transmission Date: 20190205
  Serious: Yes (Hospitalization)
  Sender: FDA-Public Use
  Company Number: DE-TEVA-311567GER

PATIENT
  Age: 85 Year
  Sex: Female

DRUGS (3)
  1. HCT [Suspect]
     Active Substance: HYDROCHLOROTHIAZIDE
     Indication: HYPERTENSION
     Route: 048
     Dates: end: 201009
  2. SERTRALINE [Suspect]
     Active Substance: SERTRALINE HYDROCHLORIDE
     Indication: DEMENTIA
  3. SERTRALINE [Suspect]
     Active Substance: SERTRALINE HYDROCHLORIDE
     Indication: DEPRESSION
     Route: 048
     Dates: start: 2010, end: 201009

REACTIONS (2)
  - Seizure [Unknown]
  - Seizure [Recovering/Resolving]

NARRATIVE: CASE EVENT DATE: 20100903
